FAERS Safety Report 8672713 (Version 4)
Quarter: 2013Q4

REPORT INFORMATION
  Report Type: Spontaneous
  Country: US (occurrence: US)
  Receive Date: 20120703
  Receipt Date: 20131031
  Transmission Date: 20140711
  Serious: Yes (Hospitalization)
  Sender: FDA-Public Use
  Company Number: US-009507513-2012SP036029

PATIENT
  Age: 66 Year
  Sex: Male

DRUGS (9)
  1. VICTRELIS [Suspect]
     Indication: HEPATITIS C
     Dosage: 800 MG, TID
     Dates: start: 20120515, end: 20120629
  2. PRILOSEC [Suspect]
  3. WARFARIN [Suspect]
  4. METFORMIN [Concomitant]
  5. ACTOS [Concomitant]
  6. NADOLOL [Concomitant]
  7. [COMPOSITION UNSPECIFIED] [Concomitant]
  8. CITALOPRAM [Concomitant]
  9. RAMIPRIL [Concomitant]

REACTIONS (9)
  - Gastrointestinal haemorrhage [Unknown]
  - Oesophageal varices haemorrhage [Unknown]
  - Haemorrhoidal haemorrhage [Unknown]
  - Haematuria [Unknown]
  - Thrombocytopenia [Unknown]
  - Medication residue present [Not Recovered/Not Resolved]
  - Dysgeusia [Recovered/Resolved]
  - Diarrhoea [Recovered/Resolved]
  - No therapeutic response [Unknown]
